FAERS Safety Report 9306880 (Version 3)
Quarter: 2014Q1

REPORT INFORMATION
  Report Type: Spontaneous
  Country: SE (occurrence: SE)
  Receive Date: 20130523
  Receipt Date: 20140219
  Transmission Date: 20141002
  Serious: Yes (Other)
  Sender: FDA-Public Use
  Company Number: SE-ALLERGAN-1307325US

PATIENT
  Age: 57 Year
  Sex: Male
  Weight: 100 kg

DRUGS (3)
  1. OZURDEX [Suspect]
     Indication: MACULAR OEDEMA
     Dosage: UNK, SINGLE
     Route: 031
     Dates: start: 20121212, end: 20121212
  2. OZURDEX [Suspect]
     Dosage: UNK, SINGLE
     Route: 031
     Dates: start: 201208, end: 201208
  3. OZURDEX [Suspect]
     Dosage: UNK, SINGLE
     Route: 031
     Dates: start: 201109, end: 201109

REACTIONS (3)
  - Visual acuity reduced [Not Recovered/Not Resolved]
  - Macular oedema [Not Recovered/Not Resolved]
  - Cataract [Unknown]
